FAERS Safety Report 13144067 (Version 1)
Quarter: 2017Q1

REPORT INFORMATION
  Report Type: Report from Study
  Country: None (occurrence: US)
  Receive Date: 20170124
  Receipt Date: 20170124
  Transmission Date: 20170428
  Serious: Yes (Other)
  Sender: FDA-Public Use
  Company Number: US-ABBVIE-16K-163-1658614-00

PATIENT
  Sex: Male

DRUGS (3)
  1. HUMIRA [Suspect]
     Active Substance: ADALIMUMAB
     Dosage: DAY 15
     Route: 058
     Dates: start: 20160703, end: 20160703
  2. HUMIRA [Suspect]
     Active Substance: ADALIMUMAB
     Indication: CROHN^S DISEASE
     Dosage: DAY 1
     Route: 058
     Dates: start: 20160618, end: 20160618
  3. HUMIRA [Suspect]
     Active Substance: ADALIMUMAB
     Route: 058
     Dates: start: 20160717

REACTIONS (19)
  - Ileostomy [Unknown]
  - Activities of daily living impaired [Unknown]
  - Sinusitis [Unknown]
  - Paranasal cyst [Unknown]
  - Crohn^s disease [Not Recovered/Not Resolved]
  - Gastrointestinal stoma complication [Unknown]
  - Abdominal pain [Unknown]
  - Injection site bruising [Recovered/Resolved]
  - Post procedural diarrhoea [Unknown]
  - Device issue [Unknown]
  - Decreased appetite [Unknown]
  - Insomnia [Unknown]
  - Drug ineffective [Unknown]
  - Incorrect dose administered [Unknown]
  - Faecaloma [Not Recovered/Not Resolved]
  - Constipation [Unknown]
  - Procedural dizziness [Recovered/Resolved]
  - Insomnia [Recovered/Resolved]
  - Malaise [Unknown]

NARRATIVE: CASE EVENT DATE: 2016
